FAERS Safety Report 7083526-4 (Version None)
Quarter: 2010Q4

REPORT INFORMATION
  Report Type: 
  Country: None (occurrence: None)
  Receive Date: 20101104
  Receipt Date: 20101027
  Transmission Date: 20110411
  Serious: Yes (Hospitalization)
  Sender: FDA-Public Use
  Company Number: JP-ROCHE-693659

PATIENT
  Age: 50 Year
  Sex: Male

DRUGS (21)
  1. VALGANCICLOVIR HCL [Suspect]
     Dosage: DRUG NAME: VALIXA (VALGANCICLOVIR HYDROCHLORIDE)
     Route: 048
     Dates: start: 20090807, end: 20090817
  2. VALGANCICLOVIR HCL [Suspect]
     Route: 048
     Dates: start: 20090821, end: 20091019
  3. VALGANCICLOVIR HCL [Suspect]
     Route: 048
     Dates: start: 20091224, end: 20100108
  4. DENOSINE IV [Suspect]
     Dosage: INFUSION; 5 DOSES A WEEK
     Route: 041
     Dates: start: 20090802, end: 20090806
  5. DENOSINE IV [Suspect]
     Dosage: FIVE DOSES A WEEK
     Route: 041
     Dates: start: 20090818, end: 20090820
  6. DENOSINE IV [Suspect]
     Dosage: INTRAVENOUS DRIP; 7 DOSES/WEEK
     Route: 041
     Dates: start: 20091105, end: 20091114
  7. DENOSINE IV [Suspect]
     Dosage: INTRAVENOUS DRIP; 7 DOSES/WEEK
     Route: 041
     Dates: start: 20091115, end: 20091206
  8. DENOSINE IV [Suspect]
     Dosage: INTRAVENOUS DRIP; 7 DOSES/WEEK
     Route: 041
     Dates: start: 20091207, end: 20091223
  9. TACROLIMUS [Suspect]
     Indication: TRANSPLANT REJECTION
     Dosage: PROGRAF
     Route: 048
     Dates: start: 20090705, end: 20100207
  10. CELLCEPT [Concomitant]
     Route: 048
     Dates: start: 20090705
  11. PREDNISOLONE [Concomitant]
     Route: 048
     Dates: start: 20090705
  12. PARIET [Concomitant]
     Route: 048
     Dates: start: 20090705
  13. ALLOID G [Concomitant]
     Dosage: DRUG NAME: SODIUM ALGINATE
     Route: 048
     Dates: start: 20090705, end: 20090810
  14. BAKTAR [Concomitant]
     Route: 048
     Dates: start: 20090719
  15. ZYLORIC [Concomitant]
     Route: 048
     Dates: start: 20090620
  16. PROTECADIN [Concomitant]
     Route: 048
     Dates: start: 20090822, end: 20100127
  17. RIVOTRIL [Concomitant]
     Dosage: START DATE: BEFORE INITIATION OF VALIXA
     Route: 048
  18. ROCALTROL [Concomitant]
     Dosage: START DATE: BEFORE INITIATION OF VALIXA
     Route: 048
     Dates: end: 20100208
  19. DAI-KENCHU-TO [Concomitant]
     Dosage: START DATE: BEFORE INITIATION OF VALIXA
     Route: 048
  20. CALCIUM CARBONATE [Concomitant]
     Dosage: START DATE: BEFORE INITIATION OF VALIXA
     Route: 048
  21. LASIX [Concomitant]
     Route: 048
     Dates: start: 20090809, end: 20090820

REACTIONS (2)
  - HEPATITIS [None]
  - INTESTINAL OBSTRUCTION [None]
